FAERS Safety Report 5818053-2 (Version None)
Quarter: 2008Q3

REPORT INFORMATION
  Report Type: 
  Country: None (occurrence: None)
  Receive Date: 20080722
  Receipt Date: 20070814
  Transmission Date: 20090109
  Serious: No
  Sender: FDA-Public Use
  Company Number: US-BAYER-US-2007-030316

PATIENT
  Age: 33 Year
  Sex: Female
  Weight: 68 kg

DRUGS (4)
  1. MAGNEVIST [Suspect]
     Indication: NUCLEAR MAGNETIC RESONANCE IMAGING BRAIN
     Dosage: UNIT DOSE: 20 ML
     Route: 042
     Dates: start: 20070813, end: 20070813
  2. NEXIUM [Concomitant]
  3. INSULIN [Concomitant]
  4. ANTIVERT ^PFIZER^ [Concomitant]

REACTIONS (3)
  - HOT FLUSH [None]
  - NASAL CONGESTION [None]
  - URTICARIA [None]
